FAERS Safety Report 13589291 (Version 1)
Quarter: 2017Q2

REPORT INFORMATION
  Report Type: Spontaneous
  Country: US (occurrence: US)
  Receive Date: 20170529
  Receipt Date: 20170529
  Transmission Date: 20170830
  Serious: Yes (Other)
  Sender: FDA-Public Use
  Company Number: US-ACCORD-051778

PATIENT
  Age: 38 Year
  Sex: Female

DRUGS (3)
  1. ETOPOSIDE. [Suspect]
     Active Substance: ETOPOSIDE
     Indication: CHEMOTHERAPY
  2. MESNA. [Suspect]
     Active Substance: MESNA
     Indication: CHEMOTHERAPY
  3. IFOSFAMIDE. [Suspect]
     Active Substance: IFOSFAMIDE
     Indication: CHEMOTHERAPY

REACTIONS (4)
  - Upper respiratory tract infection [Unknown]
  - Urinary tract infection [Unknown]
  - Anaemia [Unknown]
  - Leukopenia [Unknown]
